FAERS Safety Report 8617065 (Version 3)
Quarter: 2013Q2

REPORT INFORMATION
  Report Type: Spontaneous
  Country: FR (occurrence: FR)
  Receive Date: 20120615
  Receipt Date: 20130410
  Transmission Date: 20140414
  Serious: Yes (Hospitalization)
  Sender: FDA-Public Use
  Company Number: FR-PFIZER INC-2012139492

PATIENT
  Age: 89 Year
  Sex: 0

DRUGS (7)
  1. TAHOR [Suspect]
     Dosage: 10 MG, 1X/DAY
     Route: 048
     Dates: start: 201202, end: 20120419
  2. OMEPRAZOLE [Suspect]
     Dosage: 1 DF, 1X/DAY
     Route: 048
     Dates: end: 20120419
  3. BISOPROLOL FUMARATE [Concomitant]
     Dosage: 10 MG, 1X/DAY
     Route: 048
  4. KARDEGIC [Concomitant]
     Dosage: 75 MG, 1X/DAY
     Route: 048
  5. FUROSEMIDE [Concomitant]
     Dosage: 60 MG, 1X/DAY
     Route: 048
  6. PERMIXON [Concomitant]
     Dosage: UNK
     Route: 048
  7. COVERSYL [Concomitant]
     Dosage: 4 MG, 2X/DAY
     Route: 048

REACTIONS (1)
  - Drug reaction with eosinophilia and systemic symptoms [Recovered/Resolved]
